FAERS Safety Report 14034388 (Version 2)
Quarter: 2017Q4

REPORT INFORMATION
  Report Type: Spontaneous
  Country: PL (occurrence: PL)
  Receive Date: 20171003
  Receipt Date: 20171016
  Transmission Date: 20180321
  Serious: Yes (Death, Other)
  Sender: FDA-Public Use
  Company Number: PL-TEVA-810740ISR

PATIENT
  Age: 26 Year
  Sex: Male

DRUGS (2)
  1. VINCRISTINE [Suspect]
     Active Substance: VINCRISTINE
     Indication: EWING^S SARCOMA
     Route: 065
  2. DOXORUBICIN [Suspect]
     Active Substance: DOXORUBICIN
     Indication: EWING^S SARCOMA
     Dosage: 40 MILLIGRAM DAILY; DUE TO BONE MARROW INFILTRATION DOXORUBICIN DOSE WAS REDUCED TO 40 MG
     Route: 065

REACTIONS (4)
  - Cardiac arrest [Unknown]
  - Disease progression [Unknown]
  - Treatment failure [Unknown]
  - Pancytopenia [Recovered/Resolved]

NARRATIVE: CASE EVENT DATE: 201402
